FAERS Safety Report 6554029-8 (Version None)
Quarter: 2010Q1

REPORT INFORMATION
  Report Type: 
  Country: None (occurrence: None)
  Receive Date: 20100127
  Receipt Date: 20100126
  Transmission Date: 20100710
  Serious: Yes (Other)
  Sender: FDA-Public Use
  Company Number: IT-SANOFI-AVENTIS-2009SA010267

PATIENT
  Age: 65 Year
  Sex: Female

DRUGS (3)
  1. TAXOTERE [Suspect]
     Indication: LARYNGEAL CANCER
     Route: 042
     Dates: start: 20091201, end: 20091201
  2. SOLDESAM [Concomitant]
     Indication: PREMEDICATION
     Route: 065
     Dates: start: 20091201, end: 20091201
  3. ANTIHISTAMINES [Concomitant]
     Indication: PREMEDICATION
     Route: 065
     Dates: start: 20091201, end: 20091201

REACTIONS (2)
  - CARDIAC ARREST [None]
  - INFUSION RELATED REACTION [None]
